FAERS Safety Report 12118962 (Version 1)
Quarter: 2016Q1

REPORT INFORMATION
  Report Type: Report from Study
  Country: US (occurrence: US)
  Receive Date: 20160226
  Receipt Date: 20160226
  Transmission Date: 20160526
  Serious: Yes (Other)
  Sender: FDA-Public Use
  Company Number: US-BRACCO-013228

PATIENT
  Age: 57 Year
  Sex: Male

DRUGS (1)
  1. PROHANCE [Suspect]
     Active Substance: GADOTERIDOL
     Indication: NUCLEAR MAGNETIC RESONANCE IMAGING

REACTIONS (3)
  - Biopsy brain abnormal [Unknown]
  - Biopsy bone abnormal [Unknown]
  - Biopsy skin abnormal [Unknown]
